FAERS Safety Report 9601192 (Version 2)
Quarter: 2013Q4

REPORT INFORMATION
  Report Type: Spontaneous
  Country: US (occurrence: US)
  Receive Date: 20131005
  Receipt Date: 20131110
  Transmission Date: 20140711
  Serious: No
  Sender: FDA-Public Use
  Company Number: US-009507513-1309USA005076

PATIENT
  Age: 74 Year
  Sex: Female

DRUGS (10)
  1. SINEMET [Suspect]
     Indication: PARKINSON^S DISEASE
     Dosage: 25MG/100MG, THREE TIMES DAILY
     Route: 048
     Dates: start: 201306
  2. KLONOPIN [Concomitant]
     Dosage: 2 MG, ONCE DAILY
  3. METFORMIN [Concomitant]
     Dosage: 1000 MG, TWICE DAILY
  4. ARMOUR THYROID TABLETS [Concomitant]
     Dosage: 60 MG, ONCE DAILY
  5. GLYBURIDE [Concomitant]
     Dosage: 4 MG, TWICE DAILY
  6. ZOCOR [Concomitant]
     Dosage: 20 MG, ONCE DAILY
     Route: 048
  7. ESTRADIOL [Concomitant]
     Dosage: 0.5 MG, TWICE DAILY
     Route: 048
  8. BENICAR [Concomitant]
  9. CYMBALTA [Concomitant]
     Dosage: 30 MG, ONCE DAILY
  10. ABILIFY [Concomitant]
     Dosage: 2 MG, ONCE DAILY

REACTIONS (1)
  - Dopamine dysregulation syndrome [Not Recovered/Not Resolved]
